FAERS Safety Report 22300596 (Version 3)
Quarter: 2023Q2

REPORT INFORMATION
  Report Type: Spontaneous
  Country: US (occurrence: US)
  Receive Date: 20230509
  Receipt Date: 20230630
  Transmission Date: 20230721
  Serious: Yes (Other)
  Sender: FDA-Public Use
  Company Number: US-PFIZER INC-PV202300080795

PATIENT
  Age: 82 Year
  Sex: Male

DRUGS (2)
  1. RETACRIT [Suspect]
     Active Substance: EPOETIN ALFA-EPBX
     Indication: Iron deficiency anaemia
     Dosage: 20000 IU, EVERY 2 WEEKS
     Route: 058
  2. IRON [Suspect]
     Active Substance: IRON
     Dosage: UNK
     Route: 048

REACTIONS (6)
  - Melaena [Unknown]
  - Off label use [Unknown]
  - Hypoacusis [Unknown]
  - Asthenia [Recovering/Resolving]
  - Fatigue [Recovering/Resolving]
  - Dyspnoea exertional [Recovering/Resolving]
